FAERS Safety Report 8435686-8 (Version None)
Quarter: 2012Q2

REPORT INFORMATION
  Report Type: 
  Country: None (occurrence: None)
  Receive Date: 20120608
  Receipt Date: 20120531
  Transmission Date: 20120825
  Serious: No
  Sender: FDA-Public Use
  Company Number: 2012SP026330

PATIENT
  Age: 49 Year
  Sex: Female

DRUGS (8)
  1. LEVOTHYROXINE SODIUM [Concomitant]
  2. DEPAKENE [Concomitant]
  3. CLONAZEPAM [Concomitant]
  4. LITHIUM [Concomitant]
  5. DOSTINEX [Concomitant]
  6. SYCREST (ASENAPINE) (5 MG) [Suspect]
     Indication: BIPOLAR I DISORDER
     Dosage: 5 MG;QD;SL
     Route: 060
     Dates: start: 20120305, end: 20120307
  7. SYCREST (ASENAPINE) (5 MG) [Suspect]
     Indication: BIPOLAR DISORDER
     Dosage: 5 MG;QD;SL
     Route: 060
     Dates: start: 20120305, end: 20120307
  8. SYCREST (ASENAPINE) (5 MG) [Suspect]
     Indication: BIPOLAR DISORDER
     Dosage: SL
     Route: 060
     Dates: start: 20120307, end: 20120307

REACTIONS (2)
  - BRADYCARDIA [None]
  - HYPOTENSION [None]
